FAERS Safety Report 16138312 (Version 2)
Quarter: 2019Q2

REPORT INFORMATION
  Report Type: Spontaneous
  Country: JP (occurrence: JP)
  Receive Date: 20190330
  Receipt Date: 20190415
  Transmission Date: 20190711
  Serious: Yes (Death, Life-Threatening, Hospitalization, Other)
  Sender: FDA-Public Use
  Company Number: JP-ACCORD-117209

PATIENT
  Age: 63 Year
  Sex: Female

DRUGS (5)
  1. ABATACEPT [Suspect]
     Active Substance: ABATACEPT
     Indication: RHEUMATOID ARTHRITIS
     Route: 042
  2. ETANERCEPT [Suspect]
     Active Substance: ETANERCEPT
     Indication: RHEUMATOID ARTHRITIS
  3. PREDNISOLONE. [Concomitant]
     Active Substance: PREDNISOLONE
     Indication: HYPERSENSITIVITY VASCULITIS
     Dosage: REDUCTION IN THE DOSE
     Route: 042
  4. INFLIXIMAB [Suspect]
     Active Substance: INFLIXIMAB
     Indication: RHEUMATOID ARTHRITIS
  5. METHOTREXATE. [Suspect]
     Active Substance: METHOTREXATE
     Indication: RHEUMATOID ARTHRITIS
     Route: 048
     Dates: start: 1998, end: 2010

REACTIONS (9)
  - Haemophagocytic lymphohistiocytosis [Fatal]
  - Liver injury [Not Recovered/Not Resolved]
  - Hepatic failure [Fatal]
  - Hepatitis [Not Recovered/Not Resolved]
  - Bronchopulmonary aspergillosis [Fatal]
  - Epstein-Barr virus infection [Fatal]
  - Systemic inflammatory response syndrome [Unknown]
  - Cytomegalovirus infection [Recovered/Resolved]
  - Lymphoproliferative disorder [Not Recovered/Not Resolved]
